FAERS Safety Report 20774207 (Version 1)
Quarter: 2022Q2

REPORT INFORMATION
  Report Type: Spontaneous
  Country: US (occurrence: None)
  Receive Date: 20220429
  Receipt Date: 20220429
  Transmission Date: 20220721
  Serious: No
  Sender: FDA-Public Use
  Company Number: None

PATIENT
  Age: 7 Year
  Sex: Male
  Weight: 23.4 kg

DRUGS (1)
  1. MONTELUKAST [Suspect]
     Active Substance: MONTELUKAST SODIUM
     Indication: Rhinitis allergic
     Route: 048

REACTIONS (6)
  - Therapy non-responder [None]
  - Personality change [None]
  - Anger [None]
  - Middle insomnia [None]
  - Nocturnal fear [None]
  - Enuresis [None]

NARRATIVE: CASE EVENT DATE: 20220301
